FAERS Safety Report 14190650 (Version 1)
Quarter: 2017Q4

REPORT INFORMATION
  Report Type: Spontaneous
  Country: FR (occurrence: FR)
  Receive Date: 20171115
  Receipt Date: 20171115
  Transmission Date: 20180321
  Serious: Yes (Hospitalization)
  Sender: FDA-Public Use
  Company Number: FR-PFIZER INC-2017480732

PATIENT
  Age: 77 Year
  Sex: Male

DRUGS (20)
  1. DOCETAXEL HOSPIRA [Suspect]
     Active Substance: DOCETAXEL
     Dosage: 130 MG, CYCLIC (C2)
     Route: 042
     Dates: start: 20170809, end: 20170809
  2. DOCETAXEL HOSPIRA [Suspect]
     Active Substance: DOCETAXEL
     Dosage: 130 MG, CYCLIC (C3)
     Route: 042
     Dates: start: 20170830, end: 20170830
  3. PREDNISOLONE. [Suspect]
     Active Substance: PREDNISOLONE
     Dosage: 67 MG, CYCLIC (C4)
     Route: 048
     Dates: start: 20170920, end: 20170920
  4. SETOFILM [Suspect]
     Active Substance: ONDANSETRON
     Dosage: 8 MG, CYCLIC (C2)
     Route: 048
     Dates: start: 20170809, end: 20170809
  5. FENOFIBRATE. [Suspect]
     Active Substance: FENOFIBRATE
     Indication: DYSLIPIDAEMIA
     Dosage: 160 MG, 1X/DAY
     Route: 048
  6. EZETROL [Suspect]
     Active Substance: EZETIMIBE
     Indication: DYSLIPIDAEMIA
     Dosage: 10 MG, 1X/DAY
     Route: 048
  7. KARDEGIC [Suspect]
     Active Substance: ASPIRIN DL-LYSINE
     Indication: CAROTID ARTERY STENOSIS
     Dosage: 75 MG, 1X/DAY
     Route: 048
  8. SETOFILM [Suspect]
     Active Substance: ONDANSETRON
     Dosage: 8 MG, CYCLIC (C4)
     Route: 048
     Dates: start: 20170920, end: 20170920
  9. ZOLADEX [Suspect]
     Active Substance: GOSERELIN ACETATE
     Indication: PROSTATE CANCER
     Dosage: 1 DF, EVERY 3 MONTHS
     Route: 058
  10. PREDNISOLONE. [Suspect]
     Active Substance: PREDNISOLONE
     Dosage: 67 MG, CYCLIC (C2)
     Route: 048
     Dates: start: 20170809, end: 20170809
  11. PREDNISOLONE. [Suspect]
     Active Substance: PREDNISOLONE
     Dosage: 67 MG, CYCLIC (C3)
     Route: 048
     Dates: start: 20170830, end: 20170830
  12. SETOFILM [Suspect]
     Active Substance: ONDANSETRON
     Dosage: 8 MG, CYCLIC (C3)
     Route: 048
     Dates: start: 20170830, end: 20170830
  13. DOCETAXEL HOSPIRA [Suspect]
     Active Substance: DOCETAXEL
     Dosage: 130 MG, CYCLIC (C4)
     Route: 042
     Dates: start: 20170920, end: 20170920
  14. PREDNISOLONE. [Suspect]
     Active Substance: PREDNISOLONE
     Dosage: 67 MG, CYCLIC (C5)
     Route: 048
     Dates: start: 20171010, end: 20171010
  15. DOCETAXEL HOSPIRA [Suspect]
     Active Substance: DOCETAXEL
     Indication: PROSTATE CANCER
     Dosage: 130 MG, CYCLIC (C1)
     Route: 042
     Dates: start: 201706, end: 201706
  16. DOCETAXEL HOSPIRA [Suspect]
     Active Substance: DOCETAXEL
     Dosage: 130 MG, CYCLIC (C5)
     Route: 042
     Dates: start: 20171010, end: 20171010
  17. PREDNISOLONE. [Suspect]
     Active Substance: PREDNISOLONE
     Indication: PROPHYLAXIS OF NAUSEA AND VOMITING
     Dosage: 67 MG, CYCLIC (C1)
     Route: 048
     Dates: start: 201706, end: 201706
  18. SETOFILM [Suspect]
     Active Substance: ONDANSETRON
     Dosage: 8 MG, CYCLIC (C5)
     Route: 048
     Dates: start: 20171010, end: 20171010
  19. OMEPRAZOLE. [Suspect]
     Active Substance: OMEPRAZOLE
     Dosage: 40 MG, DAILY
     Route: 048
     Dates: end: 20171024
  20. SETOFILM [Suspect]
     Active Substance: ONDANSETRON
     Indication: PROPHYLAXIS OF NAUSEA AND VOMITING
     Dosage: 8 MG, CYCLIC (C1)
     Route: 048
     Dates: start: 201706, end: 201706

REACTIONS (2)
  - Pneumonia [Not Recovered/Not Resolved]
  - Dyspnoea [Not Recovered/Not Resolved]

NARRATIVE: CASE EVENT DATE: 20171018
